FAERS Safety Report 18263878 (Version 1)
Quarter: 2020Q3

REPORT INFORMATION
  Report Type: Spontaneous
  Country: US (occurrence: US)
  Receive Date: 20200914
  Receipt Date: 20200914
  Transmission Date: 20201103
  Serious: No
  Sender: FDA-Public Use
  Company Number: US-BAYER-2020-185574

PATIENT
  Sex: Male

DRUGS (14)
  1. XTANDI [Suspect]
     Active Substance: ENZALUTAMIDE
     Indication: PROSTATE CANCER
     Dosage: 160 MG, QD
     Route: 048
     Dates: start: 2020
  2. TRIAMTERENE. [Concomitant]
     Active Substance: TRIAMTERENE
  3. LUPRON DEPOT [Concomitant]
     Active Substance: LEUPROLIDE ACETATE
  4. NIACIN. [Concomitant]
     Active Substance: NIACIN
  5. XGEVA [Concomitant]
     Active Substance: DENOSUMAB
  6. XOFIGO [Suspect]
     Active Substance: RADIUM RA-223 DICHLORIDE
     Indication: PROSTATE CANCER
     Dosage: UNK UNK, Q4WK
     Route: 065
  7. ASPIRIN 81 [Concomitant]
     Active Substance: ASPIRIN
  8. CELECOXIB. [Concomitant]
     Active Substance: CELECOXIB
  9. LISINOPRIL. [Concomitant]
     Active Substance: LISINOPRIL
  10. SIMVASTATIN. [Concomitant]
     Active Substance: SIMVASTATIN
  11. GABAPENTIN. [Concomitant]
     Active Substance: GABAPENTIN
  12. XTANDI [Suspect]
     Active Substance: ENZALUTAMIDE
     Indication: PROSTATE CANCER
     Dosage: 160 MG, QD
     Route: 048
     Dates: start: 202003, end: 2020
  13. XTANDI [Suspect]
     Active Substance: ENZALUTAMIDE
     Indication: PROSTATE CANCER
     Dosage: 160 MG, QD
     Route: 048
     Dates: start: 2020, end: 2020
  14. RITALIN [Suspect]
     Active Substance: METHYLPHENIDATE HYDROCHLORIDE
     Indication: LETHARGY
     Dosage: UNK
     Route: 065

REACTIONS (6)
  - Illness [None]
  - Prostatic specific antigen abnormal [None]
  - Nausea [Unknown]
  - Drug ineffective [None]
  - Lethargy [Unknown]
  - Fatigue [None]
